FAERS Safety Report 6643579-1 (Version None)
Quarter: 2010Q1

REPORT INFORMATION
  Report Type: 
  Country: None (occurrence: None)
  Receive Date: 20100320
  Receipt Date: 20100224
  Transmission Date: 20100710
  Serious: No
  Sender: FDA-Public Use
  Company Number: JP-JNJFOC-20100300013

PATIENT
  Age: 63 Year
  Sex: Female

DRUGS (4)
  1. FENTANYL [Suspect]
     Indication: PAIN
     Route: 062
  2. FENTANYL [Suspect]
     Route: 062
  3. FENTANYL [Suspect]
     Indication: SPINAL COLUMN STENOSIS
     Route: 062
  4. FENTANYL [Suspect]
     Route: 062

REACTIONS (6)
  - ANXIETY [None]
  - DRUG DOSE OMISSION [None]
  - DYSPNOEA [None]
  - PRURITUS [None]
  - TREMOR [None]
  - WITHDRAWAL SYNDROME [None]
